FAERS Safety Report 9325287 (Version 2)
Quarter: 2013Q4

REPORT INFORMATION
  Report Type: Report from Study
  Country: US (occurrence: US)
  Receive Date: 20130604
  Receipt Date: 20131125
  Transmission Date: 20140711
  Serious: Yes (Other)
  Sender: FDA-Public Use
  Company Number: US-BIOGENIDEC-2013BI048716

PATIENT
  Age: 61 Year
  Sex: Female

DRUGS (18)
  1. TYSABRI [Suspect]
     Indication: MULTIPLE SCLEROSIS
     Route: 042
     Dates: start: 20071217
  2. BENICAR [Concomitant]
     Route: 048
  3. HCT [Concomitant]
     Route: 048
  4. CELEBREX [Concomitant]
     Route: 048
  5. PREMARIN CREAM [Concomitant]
  6. LESCOL XL [Concomitant]
     Route: 048
  7. VITAMIN D3 [Concomitant]
     Indication: VITAMIN D DECREASED
     Route: 048
  8. ZETIA [Concomitant]
     Route: 048
  9. SYNTHROID [Concomitant]
     Indication: HYPOTHYROIDISM
  10. LUXIQ FOAM [Concomitant]
  11. COUMADIN [Concomitant]
  12. POTASSIUM CHLORIDE [Concomitant]
     Indication: SUPPLEMENTATION THERAPY
  13. FISH OIL [Concomitant]
  14. BIOTIN [Concomitant]
  15. OSCAL [Concomitant]
  16. D3 [Concomitant]
  17. MULTIVITAMIN [Concomitant]
  18. ROGAINE [Concomitant]

REACTIONS (1)
  - Invasive lobular breast carcinoma [Not Recovered/Not Resolved]
